FAERS Safety Report 15772025 (Version 1)
Quarter: 2018Q4

REPORT INFORMATION
  Report Type: Report from Study
  Country: IL (occurrence: IL)
  Receive Date: 20181228
  Receipt Date: 20181228
  Transmission Date: 20190205
  Serious: Yes (Other)
  Sender: FDA-Public Use
  Company Number: IL-SAKK-2018SA393767AA

PATIENT
  Age: 83 Year
  Sex: Female

DRUGS (1)
  1. INSULIN GLARGINE [Suspect]
     Active Substance: INSULIN GLARGINE
     Dosage: 8 U, QD
     Route: 058
     Dates: start: 20181117

REACTIONS (2)
  - General physical health deterioration [Not Recovered/Not Resolved]
  - Renal injury [Not Recovered/Not Resolved]
